FAERS Safety Report 7543547-1 (Version None)
Quarter: 2011Q2

REPORT INFORMATION
  Report Type: 
  Country: None (occurrence: None)
  Receive Date: 20110613
  Receipt Date: 20020725
  Transmission Date: 20111010
  Serious: Yes (Death)
  Sender: FDA-Public Use
  Company Number: PHBS2002AR08903

PATIENT
  Age: 52 Year
  Sex: Male

DRUGS (2)
  1. LESCOL [Suspect]
     Indication: HYPERLIPIDAEMIA
     Dosage: 40 MG, QD
     Route: 048
     Dates: start: 20010801
  2. STARLIX [Suspect]
     Indication: DIABETES MELLITUS
     Dosage: 3 DF, QD
     Route: 048
     Dates: start: 20010801

REACTIONS (2)
  - INFARCTION [None]
  - CHEST PAIN [None]
